FAERS Safety Report 18380756 (Version 1)
Quarter: 2020Q4

REPORT INFORMATION
  Report Type: Other
  Country: GB (occurrence: GB)
  Receive Date: 20201014
  Receipt Date: 20201014
  Transmission Date: 20210114
  Serious: Yes (Disabling)
  Sender: FDA-Public Use
  Company Number: GB-MACLEODS PHARMACEUTICALS US LTD-MAC2020028416

PATIENT

DRUGS (1)
  1. ARIPIPRAZOLE. [Suspect]
     Active Substance: ARIPIPRAZOLE
     Indication: MENTAL DISORDER
     Dosage: UNK (INFUSION)
     Route: 065

REACTIONS (16)
  - Nightmare [Unknown]
  - Disturbance in attention [Unknown]
  - Paraesthesia [Unknown]
  - Insomnia [Unknown]
  - Thinking abnormal [Unknown]
  - Thirst [Unknown]
  - Brain injury [Unknown]
  - Nausea [Unknown]
  - Poor peripheral circulation [Unknown]
  - Muscle spasms [Unknown]
  - Pyrexia [Unknown]
  - Spinal disorder [Unknown]
  - Spinal pain [Unknown]
  - Nervous system disorder [Unknown]
  - Muscular weakness [Unknown]
  - Tremor [Unknown]
